FAERS Safety Report 9924832 (Version 1)
Quarter: 2014Q1

REPORT INFORMATION
  Report Type: Spontaneous
  Country: US (occurrence: None)
  Receive Date: 20140224
  Receipt Date: 20140224
  Transmission Date: 20141002
  Serious: Yes (Other)
  Sender: FDA-Public Use
  Company Number: None

PATIENT
  Age: 46 Year
  Sex: Male
  Weight: 117.94 kg

DRUGS (1)
  1. SULFAMETHOXAZOLE/TRIMETHOPRIM 800/160 [Suspect]
     Indication: SINUSITIS
     Dosage: ONE TABLE TWICE DAILY
     Route: 048
     Dates: start: 20140213, end: 20140214

REACTIONS (5)
  - Palpitations [None]
  - Dizziness [None]
  - Dyspnoea [None]
  - Penile blister [None]
  - Burns second degree [None]
